FAERS Safety Report 21471848 (Version 1)
Quarter: 2022Q4

REPORT INFORMATION
  Report Type: Spontaneous
  Country: IT (occurrence: IT)
  Receive Date: 20221018
  Receipt Date: 20221018
  Transmission Date: 20230113
  Serious: Yes (Other)
  Sender: FDA-Public Use
  Company Number: IT-JNJFOC-20221019452

PATIENT

DRUGS (2)
  1. RISPERDAL [Suspect]
     Active Substance: RISPERIDONE
     Indication: Product used for unknown indication
     Dosage: RISPERDAL IN DROPS- MINIMUM DOSE
     Route: 065
  2. FEVARIN [Suspect]
     Active Substance: FLUVOXAMINE MALEATE
     Indication: Product used for unknown indication
     Dosage: HALF TABLET OF THE PACKAGE WITH THE MOST MINIMAL DOSAGE.
     Route: 065

REACTIONS (11)
  - Substance abuse [Recovering/Resolving]
  - Brain injury [Unknown]
  - Memory impairment [Recovering/Resolving]
  - Loss of personal independence in daily activities [Unknown]
  - Disorientation [Unknown]
  - Tachycardia [Recovering/Resolving]
  - Malaise [Recovering/Resolving]
  - Hypokinesia [Recovering/Resolving]
  - Depression [Recovering/Resolving]
  - Headache [Recovering/Resolving]
  - Gait disturbance [Unknown]

NARRATIVE: CASE EVENT DATE: 20190101
